FAERS Safety Report 6726571-8 (Version None)
Quarter: 2010Q2

REPORT INFORMATION
  Report Type: 
  Country: None (occurrence: None)
  Receive Date: 20100514
  Receipt Date: 20100412
  Transmission Date: 20101027
  Serious: Yes (Death, Hospitalization, Other)
  Sender: FDA-Public Use
  Company Number: US-BAXTER-2009BH008622

PATIENT
  Age: 61 Year
  Sex: Female
  Weight: 84 kg

DRUGS (16)
  1. HEPARIN SODIUM INJECTION [Suspect]
     Indication: PROPHYLAXIS
     Route: 033
     Dates: start: 20080122, end: 20080215
  2. ASPIRIN [Concomitant]
     Indication: DRUG USE FOR UNKNOWN INDICATION
     Route: 048
  3. COREG [Concomitant]
     Indication: DRUG USE FOR UNKNOWN INDICATION
     Route: 048
  4. HUMALOG [Concomitant]
     Indication: DRUG USE FOR UNKNOWN INDICATION
     Route: 058
  5. LANTUS [Concomitant]
     Indication: DRUG USE FOR UNKNOWN INDICATION
     Route: 058
  6. LIPITOR [Concomitant]
     Indication: DRUG USE FOR UNKNOWN INDICATION
     Route: 048
  7. RENAGEL [Concomitant]
     Indication: DRUG USE FOR UNKNOWN INDICATION
     Route: 048
  8. RENAL CAPS [Concomitant]
     Indication: DRUG USE FOR UNKNOWN INDICATION
     Route: 048
  9. SENSIPAR [Concomitant]
     Indication: DRUG USE FOR UNKNOWN INDICATION
     Route: 048
  10. ZETIA [Concomitant]
     Indication: DRUG USE FOR UNKNOWN INDICATION
     Route: 048
  11. FOLIC ACID [Concomitant]
     Indication: DRUG USE FOR UNKNOWN INDICATION
     Route: 065
  12. SENSIPAR [Concomitant]
     Route: 065
  13. ATENOLOL [Concomitant]
     Indication: DRUG USE FOR UNKNOWN INDICATION
     Route: 065
  14. FUROSEMIDE [Concomitant]
     Indication: DRUG USE FOR UNKNOWN INDICATION
     Route: 065
  15. LISINOPRIL [Concomitant]
     Indication: DRUG USE FOR UNKNOWN INDICATION
     Route: 048
  16. ALBUTEROL [Concomitant]
     Indication: DRUG USE FOR UNKNOWN INDICATION
     Route: 055

REACTIONS (14)
  - ABDOMINAL DISCOMFORT [None]
  - ARTERIOSCLEROSIS CORONARY ARTERY [None]
  - CARDIO-RESPIRATORY ARREST [None]
  - CARDIOMEGALY [None]
  - DYSPNOEA [None]
  - HYPOTENSION [None]
  - ISCHAEMIC CARDIOMYOPATHY [None]
  - MUSCLE SPASMS [None]
  - MYOCARDIAL INFARCTION [None]
  - OEDEMA [None]
  - PERITONITIS [None]
  - RENAL FAILURE CHRONIC [None]
  - SEDATION [None]
  - THROMBOCYTOPENIA [None]
